FAERS Safety Report 13643692 (Version 2)
Quarter: 2019Q3

REPORT INFORMATION
  Report Type: Spontaneous
  Country: US (occurrence: US)
  Receive Date: 20170612
  Receipt Date: 20190708
  Transmission Date: 20191004
  Serious: Yes (Other)
  Sender: FDA-Public Use
  Company Number: US-SA-2017SA104297

PATIENT
  Age: 48 Year
  Sex: Female

DRUGS (2)
  1. AUBAGIO [Suspect]
     Active Substance: TERIFLUNOMIDE
     Indication: MULTIPLE SCLEROSIS
     Dosage: 14 MG,QD
     Route: 048
  2. AUBAGIO [Suspect]
     Active Substance: TERIFLUNOMIDE
     Dosage: 14 MG, QD
     Route: 048
     Dates: start: 20160304

REACTIONS (4)
  - Arthropathy [Unknown]
  - Liver function test abnormal [Unknown]
  - Pulmonary embolism [Unknown]
  - Unevaluable event [Unknown]

NARRATIVE: CASE EVENT DATE: 2015
